FAERS Safety Report 18098040 (Version 1)
Quarter: 2020Q3

REPORT INFORMATION
  Report Type: Spontaneous
  Country: US (occurrence: US)
  Receive Date: 20200731
  Receipt Date: 20200731
  Transmission Date: 20201103
  Serious: No
  Sender: FDA-Public Use
  Company Number: US-LUPIN PHARMACEUTICALS INC.-2020-02545

PATIENT
  Age: 77 Year
  Sex: Male

DRUGS (1)
  1. TRIAMCINOLONE ACETONIDE. [Suspect]
     Active Substance: TRIAMCINOLONE ACETONIDE
     Indication: EPICONDYLITIS
     Dosage: 40 MILLIGRAM PER MILLILITRE, SINGLE
     Route: 065

REACTIONS (2)
  - Skin hypopigmentation [Unknown]
  - Atrophy [Unknown]
